FAERS Safety Report 12922799 (Version 1)
Quarter: 2016Q4

REPORT INFORMATION
  Report Type: Spontaneous
  Country: US (occurrence: US)
  Receive Date: 20161109
  Receipt Date: 20161109
  Transmission Date: 20170207
  Serious: Yes (Other)
  Sender: FDA-Public Use
  Company Number: US-BRISTOL-MYERS SQUIBB COMPANY-BMS-2016-087871

PATIENT
  Sex: Male

DRUGS (1)
  1. OPDIVO [Suspect]
     Active Substance: NIVOLUMAB
     Indication: LUNG NEOPLASM MALIGNANT
     Dosage: UNK, Q2WK
     Route: 042

REACTIONS (14)
  - Fatigue [Unknown]
  - Sleep disorder [Unknown]
  - Neck pain [Unknown]
  - Decreased appetite [Unknown]
  - Aphasia [Unknown]
  - Headache [Unknown]
  - Second primary malignancy [Unknown]
  - Dyspnoea [Unknown]
  - Cough [Unknown]
  - Abdominal pain [Unknown]
  - Abdominal discomfort [Recovered/Resolved]
  - Chromaturia [Recovered/Resolved]
  - Thinking abnormal [Unknown]
  - Asthenia [Unknown]
